FAERS Safety Report 11378112 (Version 1)
Quarter: 2015Q3

REPORT INFORMATION
  Report Type: Spontaneous
  Country: US (occurrence: US)
  Receive Date: 20150811
  Receipt Date: 20150811
  Transmission Date: 20151125
  Serious: No
  Sender: FDA-Public Use
  Company Number: US-ELI_LILLY_AND_COMPANY-US201203005446

PATIENT
  Sex: Male

DRUGS (3)
  1. CIALIS [Suspect]
     Active Substance: TADALAFIL
     Indication: ERECTILE DYSFUNCTION
     Dosage: 5 MG, QD
     Dates: start: 20111116
  2. CYMBALTA [Concomitant]
     Active Substance: DULOXETINE HYDROCHLORIDE
     Dosage: 60 MG, QD
  3. CLOMID [Concomitant]
     Active Substance: CLOMIPHENE CITRATE
     Dosage: 15 MG, UNK

REACTIONS (6)
  - Pruritus generalised [Unknown]
  - Insomnia [Unknown]
  - Drug dose omission [Unknown]
  - Overdose [Unknown]
  - Heart rate increased [Unknown]
  - Diarrhoea [Unknown]
